FAERS Safety Report 7833943-7 (Version None)
Quarter: 2011Q4

REPORT INFORMATION
  Report Type: 
  Country: None (occurrence: None)
  Receive Date: 20111024
  Receipt Date: 20111010
  Transmission Date: 20120403
  Serious: Yes (Hospitalization, Other)
  Sender: FDA-Public Use
  Company Number: GB-SANOFI-AVENTIS-2011SA067713

PATIENT
  Age: 54 Year
  Sex: Male

DRUGS (14)
  1. EXENATIDE [Suspect]
     Route: 065
  2. EXENATIDE [Suspect]
     Route: 065
  3. AMITRIPTYLINE HCL [Suspect]
     Route: 065
  4. QUININE SULFATE [Suspect]
     Route: 065
  5. ASPIRIN [Suspect]
     Route: 065
  6. GLICLAZIDE [Suspect]
     Route: 065
  7. METFORMIN HCL [Suspect]
     Route: 048
  8. ACETAMINOPHEN [Suspect]
     Route: 065
  9. LEVOTHYROXINE SODIUM [Suspect]
     Route: 065
  10. CANDESARTAN CILEXETIL [Suspect]
     Route: 048
  11. INSULIN GLARGINE [Suspect]
     Route: 065
  12. PREGABALIN [Suspect]
     Route: 065
  13. METFORMIN HCL [Suspect]
     Route: 048
  14. ROSUVASTATIN [Suspect]
     Route: 065

REACTIONS (4)
  - MALAISE [None]
  - BODY MASS INDEX DECREASED [None]
  - GASTROINTESTINAL DISORDER [None]
  - RENAL FAILURE ACUTE [None]
